FAERS Safety Report 16550672 (Version 1)
Quarter: 2019Q3

REPORT INFORMATION
  Report Type: Spontaneous
  Country: US (occurrence: US)
  Receive Date: 20190709
  Receipt Date: 20190709
  Transmission Date: 20191004
  Serious: No
  Sender: FDA-Public Use
  Company Number: None

PATIENT
  Age: 48 Year
  Sex: Female
  Weight: 74.7 kg

DRUGS (37)
  1. EMGALITY [Concomitant]
     Active Substance: GALCANEZUMAB-GNLM
  2. B1 [Concomitant]
  3. NIACIN. [Concomitant]
     Active Substance: NIACIN
  4. NETTLE LEAF POWDER [Concomitant]
  5. C [Concomitant]
  6. L-METHIONINE [Concomitant]
  7. ZINC 50MG [Concomitant]
  8. EMGALITY [Suspect]
     Active Substance: GALCANEZUMAB-GNLM
     Indication: MIGRAINE
     Dosage: ?          OTHER FREQUENCY:1X MONTH;OTHER ROUTE:INJECTION?
     Dates: start: 20181112, end: 20190611
  9. CALCIUM/MAGNESIUM [Concomitant]
     Active Substance: CALCIUM\MAGNESIUM
  10. CALCIUM [Concomitant]
     Active Substance: CALCIUM
  11. SELENIUM [Concomitant]
     Active Substance: SELENIUM
  12. COPPER [Concomitant]
     Active Substance: COPPER
  13. MANGANESE [Concomitant]
     Active Substance: MANGANESE CHLORIDE
  14. SELENIUM [Concomitant]
     Active Substance: SELENIUM
  15. UNITHROID [Concomitant]
     Active Substance: LEVOTHYROXINE SODIUM
  16. L-CYSTEINE [Concomitant]
     Active Substance: CYSTEINE
  17. MAALT [Concomitant]
  18. A [Concomitant]
  19. PANTOTHENIC ACID [Concomitant]
     Active Substance: PANTOTHENIC ACID
  20. CHOLINE [Concomitant]
     Active Substance: CHOLINE
  21. MSM [Concomitant]
     Active Substance: DIMETHYL SULFONE
  22. CITRUS BIOFLAVONOIDS. [Concomitant]
     Active Substance: CITRUS BIOFLAVONOIDS
  23. MAGNESIUM [Concomitant]
     Active Substance: MAGNESIUM
  24. PABA [Concomitant]
     Active Substance: AMINOBENZOIC ACID
  25. BORON [Concomitant]
     Active Substance: BORON
  26. WOMEN^S PROBIOTICS [Concomitant]
  27. D [Concomitant]
  28. FOLATE [Concomitant]
     Active Substance: FOLATE SODIUM
  29. HORSETAIL LEAF EXTRACT [Concomitant]
  30. INOSITOL [Concomitant]
     Active Substance: INOSITOL
  31. DOLOVENT DIGESTIVE ENZYMES [Concomitant]
  32. FISH OIL [Concomitant]
     Active Substance: FISH OIL
  33. HAIR, SKIN, + NAILS [Concomitant]
  34. E [Concomitant]
  35. BIOTIN [Concomitant]
     Active Substance: BIOTIN
  36. ZINC 5MG [Concomitant]
  37. TRACE MINERALS [Concomitant]

REACTIONS (3)
  - Condition aggravated [None]
  - Weight increased [None]
  - Arthralgia [None]

NARRATIVE: CASE EVENT DATE: 20190204
